FAERS Safety Report 10012097 (Version 1)
Quarter: 2014Q1

REPORT INFORMATION
  Report Type: Report from Study
  Country: US (occurrence: US)
  Receive Date: 20140314
  Receipt Date: 20140314
  Transmission Date: 20141002
  Serious: Yes (Hospitalization)
  Sender: FDA-Public Use
  Company Number: US-ABBVIE-14P-163-1209589-00

PATIENT
  Age: 64 Year
  Sex: Male
  Weight: 56.75 kg

DRUGS (4)
  1. HUMIRA [Suspect]
     Indication: CROHN^S DISEASE
     Dates: start: 2012, end: 201312
  2. HUMIRA [Suspect]
     Dosage: ONE TIME DOSE
     Dates: start: 20140130, end: 20140130
  3. HUMIRA [Suspect]
     Dosage: ONE TIME DOSE
     Dates: start: 20140213, end: 20140213
  4. HUMIRA [Suspect]
     Dates: start: 20140227

REACTIONS (3)
  - Intestinal stenosis [Recovered/Resolved]
  - Diarrhoea [Recovered/Resolved]
  - Abdominal pain [Recovered/Resolved]
